FAERS Safety Report 5606668-6 (Version None)
Quarter: 2008Q1

REPORT INFORMATION
  Report Type: 
  Country: None (occurrence: None)
  Receive Date: 20080129
  Receipt Date: 20080122
  Transmission Date: 20080703
  Serious: Yes (Death)
  Sender: FDA-Public Use
  Company Number: US-KINGPHARMUSA00001-K200800094

PATIENT

DRUGS (14)
  1. SKELAXIN [Suspect]
     Route: 048
  2. RISPERIDONE [Suspect]
     Route: 048
  3. HEPARIN [Suspect]
     Route: 048
  4. OXYCODONE [Suspect]
     Route: 048
  5. ESCITALOPRAM [Suspect]
     Route: 048
  6. BUPROPION HCL [Suspect]
  7. CLONIDINE [Suspect]
     Route: 048
  8. CORTICOSTEROID NOS [Suspect]
     Route: 048
  9. METHADONE HCL [Suspect]
     Route: 048
  10. ALBUTEROL [Suspect]
     Route: 048
  11. HALOPERIDOL [Suspect]
     Route: 048
  12. ACYCLOVIR [Suspect]
     Route: 048
  13. VANCOMYCIN [Suspect]
     Route: 048
  14. LAMOTRIGINE [Suspect]
     Route: 048

REACTIONS (1)
  - DEATH [None]
